FAERS Safety Report 23589546 (Version 1)
Quarter: 2024Q1

REPORT INFORMATION
  Report Type: Spontaneous
  Country: ES (occurrence: ES)
  Receive Date: 20240304
  Receipt Date: 20240304
  Transmission Date: 20240409
  Serious: Yes (Other)
  Sender: FDA-Public Use
  Company Number: ES-NOVOPROD-1181128

PATIENT
  Age: 15 Year
  Sex: Female

DRUGS (1)
  1. SAXENDA [Suspect]
     Active Substance: LIRAGLUTIDE
     Indication: Product used for unknown indication
     Dosage: UNK

REACTIONS (5)
  - Hyperhidrosis [Unknown]
  - Depression [Unknown]
  - Headache [Unknown]
  - Abdominal pain upper [Unknown]
  - Liquid product physical issue [Unknown]
